FAERS Safety Report 20368199 (Version 2)
Quarter: 2022Q1

REPORT INFORMATION
  Report Type: Spontaneous
  Country: FR (occurrence: None)
  Receive Date: 20220124
  Receipt Date: 20220208
  Transmission Date: 20220424
  Serious: Yes (Hospitalization, Other)
  Sender: FDA-Public Use
  Company Number: FR-ACS-002165

PATIENT
  Age: 48 Year
  Sex: Male
  Weight: 74 kg

DRUGS (3)
  1. CEFTRIAXONE [Suspect]
     Active Substance: CEFTRIAXONE
     Indication: Nocardiosis
     Dosage: HIGH-DOSE
     Route: 042
     Dates: start: 20180129, end: 20180209
  2. AZITHROMYCIN [Suspect]
     Active Substance: AZITHROMYCIN
     Indication: Nocardiosis
     Dosage: HIGH-DOSE
     Route: 048
     Dates: start: 20180126, end: 20180209
  3. IMMUNOGLOBULINS [Concomitant]
     Indication: Hypogammaglobulinaemia
     Route: 042
     Dates: start: 2018

REACTIONS (1)
  - Drug reaction with eosinophilia and systemic symptoms [Recovered/Resolved]

NARRATIVE: CASE EVENT DATE: 20180209
